FAERS Safety Report 18144821 (Version 1)
Quarter: 2020Q3

REPORT INFORMATION
  Report Type: Spontaneous
  Country: US (occurrence: US)
  Receive Date: 20200813
  Receipt Date: 20200813
  Transmission Date: 20201103
  Serious: No
  Sender: FDA-Public Use
  Company Number: None

PATIENT
  Age: 36 Year
  Weight: 98.7 kg

DRUGS (11)
  1. ZINC SULFATE 220MG [Concomitant]
     Dates: start: 20200806
  2. DEXAMETHASONE 6MG [Concomitant]
     Dates: start: 20200806
  3. LISINOPRIL 10MG [Concomitant]
     Active Substance: LISINOPRIL
     Dates: start: 20200806
  4. FUROSEMIDE 20MG [Concomitant]
     Active Substance: FUROSEMIDE
     Dates: start: 20200806
  5. MELATONIN 10MG [Concomitant]
     Dates: start: 20200806
  6. VITAMIN C 500MG [Concomitant]
     Dates: start: 20200806
  7. ALBUTEROL 1.25MG [Concomitant]
     Active Substance: ALBUTEROL
     Dates: start: 20200806
  8. INSULIN LISPRO [Concomitant]
     Active Substance: INSULIN LISPRO
     Dates: start: 20200806
  9. THIAMINE 100MG [Concomitant]
     Dates: start: 20200806
  10. REMDESIVIR. [Suspect]
     Active Substance: REMDESIVIR
     Indication: COVID-19 TREATMENT
     Route: 040
     Dates: start: 20200806, end: 20200808
  11. ENOXAPARIN 50MG [Concomitant]
     Active Substance: ENOXAPARIN
     Dates: start: 20200806

REACTIONS (1)
  - Oral candidiasis [None]

NARRATIVE: CASE EVENT DATE: 20200809
